FAERS Safety Report 11026347 (Version 1)
Quarter: 2015Q2

REPORT INFORMATION
  Report Type: Spontaneous
  Country: US (occurrence: None)
  Receive Date: 20150413
  Receipt Date: 20150413
  Transmission Date: 20150821
  Serious: Yes (Life-Threatening, Other)
  Sender: FDA-Public Use
  Company Number: None

PATIENT
  Age: 10 Year
  Sex: Female
  Weight: 31.3 kg

DRUGS (2)
  1. CLARITIN [Concomitant]
     Active Substance: LORATADINE
  2. POLYETHYLENE GLYCOL 3350. [Suspect]
     Active Substance: POLYETHYLENE GLYCOL 3350
     Indication: CONSTIPATION
     Dosage: 8 OZ
     Route: 048
     Dates: start: 20150219, end: 20150225

REACTIONS (5)
  - Urticaria [None]
  - Abnormal behaviour [None]
  - Disturbance in attention [None]
  - Personality change [None]
  - Educational problem [None]

NARRATIVE: CASE EVENT DATE: 20150219
